FAERS Safety Report 13028227 (Version 1)
Quarter: 2016Q4

REPORT INFORMATION
  Report Type: Spontaneous
  Country: US (occurrence: US)
  Receive Date: 20161214
  Receipt Date: 20161214
  Transmission Date: 20170207
  Serious: Yes (Hospitalization, Other)
  Sender: FDA-Public Use
  Company Number: US-SA-2016SA223266

PATIENT
  Age: 77 Year
  Sex: Male

DRUGS (6)
  1. MULTAQ [Suspect]
     Active Substance: DRONEDARONE
     Indication: ATRIAL FIBRILLATION
     Route: 065
     Dates: start: 201606
  2. MULTAQ [Suspect]
     Active Substance: DRONEDARONE
     Indication: ATRIAL FIBRILLATION
     Route: 065
  3. MULTAQ [Suspect]
     Active Substance: DRONEDARONE
     Indication: ATRIAL FIBRILLATION
     Route: 065
  4. METOPROLOL. [Concomitant]
     Active Substance: METOPROLOL
  5. PLAVIX [Suspect]
     Active Substance: CLOPIDOGREL BISULFATE
     Route: 065
  6. ASPIRIN. [Concomitant]
     Active Substance: ASPIRIN

REACTIONS (17)
  - Myocardial infarction [Unknown]
  - Bronchitis [Unknown]
  - Product use issue [Unknown]
  - Bradycardia [Unknown]
  - Hepatic pain [Recovered/Resolved]
  - Wheezing [Unknown]
  - Sleep disorder [Unknown]
  - Asthenia [Unknown]
  - Urine output increased [Unknown]
  - Blood pressure increased [Unknown]
  - Abdominal pain upper [Unknown]
  - Pneumonia [Unknown]
  - Rales [Unknown]
  - Dyspnoea [Unknown]
  - Atrial fibrillation [Recovered/Resolved]
  - Bladder discomfort [Unknown]
  - Stenosis [Unknown]

NARRATIVE: CASE EVENT DATE: 201601
